FAERS Safety Report 5041849-4 (Version None)
Quarter: 2006Q2

REPORT INFORMATION
  Report Type: 
  Country: None (occurrence: None)
  Receive Date: 20060630
  Receipt Date: 20060626
  Transmission Date: 20061013
  Serious: Yes (Life-Threatening, Hospitalization)
  Sender: FDA-Public Use
  Company Number: CLOF-10253

PATIENT
  Age: 74 Year
  Sex: Female

DRUGS (27)
  1. CLOFARABINE [Suspect]
     Indication: ACUTE MYELOID LEUKAEMIA
     Dosage: 45 MG QD X 5 IV
     Route: 042
     Dates: start: 20050505, end: 20050510
  2. CLOFARABINE [Suspect]
     Indication: ACUTE MYELOID LEUKAEMIA
     Dosage: 45 MG QD 3 IV
     Route: 042
     Dates: start: 20050805, end: 20050807
  3. CYTARABINE [Suspect]
     Indication: ACUTE MYELOID LEUKAEMIA
     Dosage: 30 MG QD SC
     Route: 058
     Dates: start: 20050505, end: 20050518
  4. CYTARABINE [Suspect]
     Indication: ACUTE MYELOID LEUKAEMIA
     Dosage: 30 MG QD SC
     Route: 058
     Dates: start: 20050805, end: 20050811
  5. VALACYCLOVIR [Concomitant]
  6. ITRACONAZOLE [Concomitant]
  7. OSCAL [Concomitant]
  8. MULTI-VITAMN INFUSION [Concomitant]
  9. METOPROLOL TARTRATE [Concomitant]
  10. ALTACE [Concomitant]
  11. MEROPENEM [Concomitant]
  12. NIFEDIPINE [Concomitant]
  13. DARVOCET [Concomitant]
  14. BACITRACIN [Concomitant]
  15. ENALAPRIL [Concomitant]
  16. PANTOPRTAZOLE [Concomitant]
  17. DOXYCYCLINE [Concomitant]
  18. LEVAQUIN [Concomitant]
  19. VALTREX [Concomitant]
  20. ZOCOR [Concomitant]
  21. PREVACID [Concomitant]
  22. AMINODARAONE [Concomitant]
  23. VASOTEC [Concomitant]
  24. FLEXERIL [Concomitant]
  25. DARVON [Concomitant]
  26. COMPAZINE [Concomitant]
  27. LOPRESSOR [Concomitant]

REACTIONS (15)
  - ATRIAL FIBRILLATION [None]
  - CARDIAC OUTPUT DECREASED [None]
  - CELLULITIS [None]
  - CONTUSION [None]
  - DEHYDRATION [None]
  - DIARRHOEA [None]
  - FALL [None]
  - HAEMATOMA [None]
  - HYPOTENSION [None]
  - INFECTION [None]
  - LACERATION [None]
  - NAUSEA [None]
  - PNEUMONIA [None]
  - RESPIRATORY FAILURE [None]
  - VOMITING [None]
